FAERS Safety Report 8575099-1 (Version None)
Quarter: 2012Q3

REPORT INFORMATION
  Report Type: 
  Country: None (occurrence: None)
  Receive Date: 20120807
  Receipt Date: 20120802
  Transmission Date: 20120928
  Serious: No
  Sender: FDA-Public Use
  Company Number: US-TEVA-352088USA

PATIENT
  Sex: Female
  Weight: 61.29 kg

DRUGS (2)
  1. LOESTRIN 1.5/30 [Concomitant]
     Indication: CONTRACEPTION
  2. PLAN B ONE-STEP [Suspect]
     Indication: POST COITAL CONTRACEPTION
     Dosage: 1.5 MILLIGRAM DAILY;
     Route: 048
     Dates: start: 20120728, end: 20120728

REACTIONS (5)
  - PELVIC PAIN [None]
  - NIPPLE DISORDER [None]
  - INSOMNIA [None]
  - BACK PAIN [None]
  - BREAST TENDERNESS [None]
